FAERS Safety Report 7912840-2 (Version None)
Quarter: 2011Q4

REPORT INFORMATION
  Report Type: 
  Country: None (occurrence: None)
  Receive Date: 20111114
  Receipt Date: 20111102
  Transmission Date: 20120403
  Serious: Yes (Death, Hospitalization)
  Sender: FDA-Public Use
  Company Number: US-GLAXOSMITHKLINE-B0742647A

PATIENT
  Age: 70 Year
  Sex: Male
  Weight: 81.4 kg

DRUGS (6)
  1. AVANDIA [Suspect]
     Indication: DIABETES MELLITUS
     Dosage: 1MG PER DAY
     Route: 048
     Dates: start: 20010101, end: 20100624
  2. METFORMIN [Concomitant]
  3. AVANDAMET [Suspect]
     Indication: DIABETES MELLITUS
     Dosage: 2TAB TWICE PER DAY
     Route: 048
  4. MAVIK [Concomitant]
  5. GLIMEPIRIDE [Concomitant]
  6. LESCOL [Concomitant]

REACTIONS (6)
  - MYOCARDIAL INFARCTION [None]
  - ATRIAL FIBRILLATION [None]
  - DISEASE PROGRESSION [None]
  - TRICUSPID VALVE INCOMPETENCE [None]
  - MITRAL VALVE INCOMPETENCE [None]
  - CORONARY ARTERY BYPASS [None]
